FAERS Safety Report 17996245 (Version 3)
Quarter: 2020Q4

REPORT INFORMATION
  Report Type: Spontaneous
  Country: JP (occurrence: JP)
  Receive Date: 20200708
  Receipt Date: 20201012
  Transmission Date: 20210113
  Serious: Yes (Other)
  Sender: FDA-Public Use
  Company Number: JP-ALLERGAN-2025464US

PATIENT
  Sex: Female

DRUGS (3)
  1. LINACLOTIDE - BP [Suspect]
     Active Substance: LINACLOTIDE
     Indication: CONSTIPATION
     Dosage: 0.5 MG/DAY, UNKNOWN FREQ
     Route: 048
  2. MIYA-BM [Concomitant]
     Active Substance: CLOSTRIDIUM BUTYRICUM SPORES STRAIN M-55
     Dosage: 60 MG/DAY, UNKNOWN FREQ.
     Route: 048
  3. GASCON [Concomitant]
     Active Substance: DIMETHICONE
     Dosage: 120 MG/DAY, UNKNOWN FREQ.
     Route: 048

REACTIONS (1)
  - Intestinal obstruction [Recovered/Resolved]
